FAERS Safety Report 24024019 (Version 2)
Quarter: 2024Q3

REPORT INFORMATION
  Report Type: Report from Study
  Country: US (occurrence: US)
  Receive Date: 20240627
  Receipt Date: 20240710
  Transmission Date: 20241017
  Serious: No
  Sender: ROCHE
  Company Number: US-ROCHE-3459369

PATIENT
  Age: 55 Year
  Sex: Female
  Weight: 83.6 kg

DRUGS (6)
  1. PHESGO [Suspect]
     Active Substance: HYALURONIDASE-ZZXF\PERTUZUMAB\TRASTUZUMAB
     Indication: Breast cancer female
     Dosage: DATE OF TREATMENT: 17/JAN/2023
     Route: 065
  2. PHESGO [Suspect]
     Active Substance: HYALURONIDASE-ZZXF\PERTUZUMAB\TRASTUZUMAB
     Indication: Oestrogen receptor assay positive
  3. HERCEPTIN [Suspect]
     Active Substance: TRASTUZUMAB
     Indication: Oestrogen receptor assay positive
     Dosage: 6MG/KG - 501.6MG, 8MG/KG - 668.8MG, DATE OF TREATMENT: 17/JAN/2023
     Route: 041
  4. HERCEPTIN [Suspect]
     Active Substance: TRASTUZUMAB
     Indication: Breast cancer female
  5. PERJETA [Suspect]
     Active Substance: PERTUZUMAB
     Indication: Oestrogen receptor assay positive
     Dosage: 420MG IN SODIUM CHLORIDE (NS) 0.9% 250ML, DATE OF TREATMENT: 17/JAN/2023
     Route: 042
  6. PERJETA [Suspect]
     Active Substance: PERTUZUMAB
     Indication: Breast cancer female

REACTIONS (2)
  - Off label use [Unknown]
  - No adverse event [Unknown]
